FAERS Safety Report 9767623 (Version 1)
Quarter: 2013Q4

REPORT INFORMATION
  Report Type: Spontaneous
  Country: US (occurrence: None)
  Receive Date: 20131213
  Receipt Date: 20131213
  Transmission Date: 20140711
  Serious: Yes (Other)
  Sender: FDA-Public Use
  Company Number: 2013SA027505

PATIENT
  Age: 53 Year
  Sex: Female

DRUGS (1)
  1. CAPZASIN NO MESS APPLICATOR/UNKNOWN/UNKNOWN [Suspect]
     Indication: ARTHRITIS
     Route: 061
     Dates: start: 20101124

REACTIONS (4)
  - Blister [None]
  - Chemical injury [None]
  - Burning sensation [None]
  - Application site burn [None]
